FAERS Safety Report 10660805 (Version 4)
Quarter: 2015Q1

REPORT INFORMATION
  Report Type: Spontaneous
  Country: ES (occurrence: ES)
  Receive Date: 20141217
  Receipt Date: 20150311
  Transmission Date: 20150720
  Serious: Yes (Other)
  Sender: FDA-Public Use
  Company Number: ES-ALLERGAN-1422557US

PATIENT
  Age: 42 Year
  Sex: Male

DRUGS (2)
  1. BOTOX [Suspect]
     Active Substance: ONABOTULINUMTOXINA
     Indication: HYPERHIDROSIS
     Dosage: 200 UNITS, SINGLE
     Dates: start: 201407, end: 201407
  2. BOTOX [Suspect]
     Active Substance: ONABOTULINUMTOXINA
     Indication: COMPENSATORY SWEATING

REACTIONS (5)
  - Hidradenitis [Unknown]
  - Injection site discolouration [Not Recovered/Not Resolved]
  - Off label use [Unknown]
  - Skin hyperplasia [Unknown]
  - Vascular skin disorder [Unknown]
